FAERS Safety Report 25607175 (Version 2)
Quarter: 2025Q3

REPORT INFORMATION
  Report Type: Spontaneous
  Country: US (occurrence: US)
  Receive Date: 20250725
  Receipt Date: 20250730
  Transmission Date: 20251020
  Serious: Yes (Other)
  Sender: ABBVIE
  Company Number: US-ABBVIE-6383346

PATIENT
  Age: 37 Year
  Sex: Male
  Weight: 102 kg

DRUGS (2)
  1. HUMIRA [Suspect]
     Active Substance: ADALIMUMAB
     Indication: Granuloma
     Route: 058
  2. HUMIRA [Suspect]
     Active Substance: ADALIMUMAB
     Route: 058

REACTIONS (8)
  - Surgery [Unknown]
  - Drug level decreased [Unknown]
  - Off label use [Unknown]
  - Product outer packaging issue [Unknown]
  - Product storage error [Recovered/Resolved]
  - Poor quality product administered [Recovered/Resolved]
  - Skin exfoliation [Unknown]
  - Impaired healing [Unknown]

NARRATIVE: CASE EVENT DATE: 20241001
